FAERS Safety Report 5161021-7 (Version None)
Quarter: 2006Q4

REPORT INFORMATION
  Report Type: 
  Country: None (occurrence: None)
  Receive Date: 20061121
  Receipt Date: 20061108
  Transmission Date: 20070319
  Serious: Yes (Other)
  Sender: FDA-Public Use
  Company Number: 2006139847

PATIENT
  Sex: Female

DRUGS (3)
  1. LIPITOR [Suspect]
     Dosage: (10 MG), ORAL
     Route: 048
  2. RAMIPRIL [Suspect]
     Dosage: (10 MG)
  3. ASPIRIN [Suspect]
     Dosage: (75 MG)

REACTIONS (3)
  - MUSCULOSKELETAL STIFFNESS [None]
  - MYALGIA [None]
  - NONSPECIFIC REACTION [None]
